FAERS Safety Report 4271279-4 (Version None)
Quarter: 2004Q1

REPORT INFORMATION
  Report Type: 
  Country: None (occurrence: None)
  Receive Date: 20040114
  Receipt Date: 20040114
  Transmission Date: 20041129
  Serious: Yes (Hospitalization, Other)
  Sender: FDA-Public Use
  Company Number: None

PATIENT
  Sex: Female

DRUGS (1)
  1. RAPAMYCIN -CYPHER ^DRUG ELUTING STENT^ [Suspect]
     Indication: CORONARY ARTERY DISEASE

REACTIONS (1)
  - HEPATIC FAILURE [None]
